FAERS Safety Report 12067353 (Version 3)
Quarter: 2018Q3

REPORT INFORMATION
  Report Type: Spontaneous
  Country: US (occurrence: US)
  Receive Date: 20160211
  Receipt Date: 20180705
  Transmission Date: 20181010
  Serious: Yes (Death, Other)
  Sender: FDA-Public Use
  Company Number: US-009507513-1602USA004010

PATIENT
  Age: 1 Day
  Sex: Male
  Weight: 1.63 kg

DRUGS (7)
  1. VIREAD [Suspect]
     Active Substance: TENOFOVIR DISOPROXIL FUMARATE
     Dosage: UNK
     Route: 064
  2. INTELENCE [Suspect]
     Active Substance: ETRAVIRINE
     Dosage: UNK
     Route: 064
  3. RETROVIR [Suspect]
     Active Substance: ZIDOVUDINE
     Dosage: UNK
     Route: 064
  4. ISENTRESS [Suspect]
     Active Substance: RALTEGRAVIR POTASSIUM
     Dosage: UNK UNK, QD
     Route: 064
  5. TRUVADA [Suspect]
     Active Substance: EMTRICITABINE\TENOFOVIR DISOPROXIL FUMARATE
     Dosage: UNK
     Route: 064
  6. EPIVIR [Suspect]
     Active Substance: LAMIVUDINE
     Dosage: UNK
     Route: 064
  7. RETROVIR [Suspect]
     Active Substance: ZIDOVUDINE
     Dosage: SECOND COURSE; TOTAL DAILY DOSE: 1 MG/KG/HOUR; WEEK BEGAN/WEEK ENDED: 33
     Route: 064
     Dates: start: 20151210, end: 20151210

REACTIONS (3)
  - Foetal exposure during pregnancy [Recovered/Resolved]
  - Death neonatal [Fatal]
  - Premature baby [Recovered/Resolved]

NARRATIVE: CASE EVENT DATE: 20151210
